FAERS Safety Report 10898581 (Version 1)
Quarter: 2015Q1

REPORT INFORMATION
  Report Type: Report from Study
  Country: US (occurrence: US)
  Receive Date: 20150309
  Receipt Date: 20150309
  Transmission Date: 20150721
  Serious: No
  Sender: FDA-Public Use
  Company Number: US-ABBVIE-14P-163-1324870-00

PATIENT
  Sex: Female

DRUGS (1)
  1. LUPRON DEPOT [Suspect]
     Active Substance: LEUPROLIDE ACETATE
     Indication: UTERINE LEIOMYOMA
     Route: 030
     Dates: start: 20140731, end: 20141031

REACTIONS (4)
  - Arthralgia [Recovered/Resolved]
  - Hot flush [Not Recovered/Not Resolved]
  - Agitation [Not Recovered/Not Resolved]
  - Pain in extremity [Not Recovered/Not Resolved]
